FAERS Safety Report 5493959-5 (Version None)
Quarter: 2007Q4

REPORT INFORMATION
  Report Type: 
  Country: None (occurrence: None)
  Receive Date: 20071019
  Receipt Date: 20071009
  Transmission Date: 20080405
  Serious: Yes (Death)
  Sender: FDA-Public Use
  Company Number: 2007BI020111

PATIENT
  Age: 55 Year
  Sex: Female

DRUGS (1)
  1. AVONEX [Suspect]
     Indication: MULTIPLE SCLEROSIS
     Dosage: 30 UG;QW;IM
     Route: 030
     Dates: start: 19960901

REACTIONS (9)
  - ASPIRATION [None]
  - ATAXIA [None]
  - COGNITIVE DISORDER [None]
  - DYSARTHRIA [None]
  - PARAPARESIS [None]
  - RESPIRATORY FAILURE [None]
  - SECONDARY PROGRESSIVE MULTIPLE SCLEROSIS [None]
  - URINARY TRACT INFECTION [None]
  - WHEELCHAIR USER [None]
